FAERS Safety Report 19656119 (Version 1)
Quarter: 2021Q3

REPORT INFORMATION
  Report Type: Spontaneous
  Country: FR (occurrence: FR)
  Receive Date: 20210804
  Receipt Date: 20210804
  Transmission Date: 20211014
  Serious: Yes (Hospitalization)
  Sender: FDA-Public Use
  Company Number: FR-MYLANLABS-2021M1047180

PATIENT
  Age: 25 Year
  Sex: Female
  Weight: 64.4 kg

DRUGS (12)
  1. RISPERIDONE MYLAN [Suspect]
     Active Substance: RISPERIDONE
     Indication: PSYCHOTIC DISORDER
     Dosage: 1 MILLIGRAM, QD
     Route: 048
     Dates: start: 20201209, end: 20201214
  2. PROPRANOLOL EG [Suspect]
     Active Substance: PROPRANOLOL HYDROCHLORIDE
     Indication: TACHYCARDIA
     Dosage: 80 MILLIGRAM, QD (1?0?1)
     Route: 048
     Dates: start: 20201110, end: 20201221
  3. SERTRALINE MYLAN 25 MG, G?LULE [Suspect]
     Active Substance: SERTRALINE HYDROCHLORIDE
     Indication: PSYCHOTIC DISORDER
     Dosage: 25 MILLIGRAM, QD (1?0?0)
     Route: 048
     Dates: start: 20201209, end: 20201214
  4. THERALENE [Suspect]
     Active Substance: TRIMEPRAZINE
     Indication: PSYCHOTIC DISORDER
     Dosage: 20 MILLIGRAM, QD (0?0?0?4)
     Route: 048
     Dates: start: 20201110, end: 20201211
  5. CYAMEMAZINE TARTRATE [Suspect]
     Active Substance: CYAMEMAZINE
     Indication: PSYCHOTIC DISORDER
     Dosage: 12.5 MILLIGRAM, QD (0?0?0?1/2)
     Route: 048
     Dates: start: 20201209, end: 20201211
  6. LORAZEPAM MYLAN 2,5 MG, COMPRIM? PELLICUL? S?CABLE [Suspect]
     Active Substance: LORAZEPAM
     Indication: PSYCHOTIC DISORDER
     Dosage: 6.25 MILLIGRAM, QD (1/2?1/2?1/2?1)
     Route: 048
     Dates: start: 20201110, end: 20201221
  7. HYDROXYZINE MYLAN 25 MG, COMPRIM? PELLICUL? S?CABLE [Suspect]
     Active Substance: HYDROXYZINE HYDROCHLORIDE
     Indication: ANXIETY
     Dosage: 50 MILLIGRAM, QD (0?1?1)
     Route: 048
     Dates: start: 20201209, end: 20201211
  8. LOXAPAC                            /00401802/ [Suspect]
     Active Substance: LOXAPINE SUCCINATE
     Dosage: 100 MILLIGRAM, QD (0?0?1?1)
     Route: 048
     Dates: start: 20201214, end: 20201221
  9. OLANZAPINE MYLAN [Suspect]
     Active Substance: OLANZAPINE
     Indication: PSYCHOTIC DISORDER
     Dosage: 20 MILLIGRAM, QD (1?0?1)
     Route: 048
     Dates: start: 20201110, end: 20201209
  10. OLANZAPINE MYLAN [Suspect]
     Active Substance: OLANZAPINE
     Dosage: 20 MILLIGRAM, QD (1?0?1)
     Route: 048
     Dates: start: 20201214, end: 20201221
  11. LOXAPAC                            /00401802/ [Suspect]
     Active Substance: LOXAPINE SUCCINATE
     Indication: PSYCHOTIC DISORDER
     Dosage: 100 MILLIGRAM, QD (0?0?1?1)
     Route: 048
     Dates: start: 20201110, end: 20201209
  12. SULFARLEM S [Suspect]
     Active Substance: ANETHOLTRITHION
     Indication: DRY MOUTH
     Dosage: 150 MILLIGRAM, QD (2?2?2)
     Route: 048
     Dates: start: 20201209, end: 20201214

REACTIONS (1)
  - Neuroleptic malignant syndrome [Not Recovered/Not Resolved]

NARRATIVE: CASE EVENT DATE: 20201222
